FAERS Safety Report 12613975 (Version 9)
Quarter: 2017Q2

REPORT INFORMATION
  Report Type: Spontaneous
  Country: US (occurrence: US)
  Receive Date: 20160802
  Receipt Date: 20170406
  Transmission Date: 20170830
  Serious: Yes (Hospitalization, Other)
  Sender: FDA-Public Use
  Company Number: US-PFIZER INC-2016366442

PATIENT
  Age: 69 Year
  Sex: Female
  Weight: 63.49 kg

DRUGS (3)
  1. XELJANZ XR [Suspect]
     Active Substance: TOFACITINIB CITRATE
     Dosage: 11 MG, 1X/DAY
     Route: 048
     Dates: end: 201611
  2. PREDNISONE. [Concomitant]
     Active Substance: PREDNISONE
     Indication: RHEUMATOID ARTHRITIS
     Dosage: UNK
  3. XELJANZ XR [Suspect]
     Active Substance: TOFACITINIB CITRATE
     Indication: RHEUMATOID ARTHRITIS
     Dosage: 11 MG, 1X/DAY (ONE A DAY)
     Route: 048
     Dates: start: 20160714

REACTIONS (12)
  - Loss of consciousness [Unknown]
  - Urinary incontinence [Recovered/Resolved]
  - Chest pain [Recovered/Resolved]
  - Urinary tract infection [Unknown]
  - Pallor [Unknown]
  - Pyrexia [Recovered/Resolved]
  - Hypertension [Recovered/Resolved]
  - Heart rate decreased [Recovered/Resolved]
  - Tremor [Unknown]
  - Fall [Unknown]
  - Abnormal behaviour [Unknown]
  - Contusion [Unknown]

NARRATIVE: CASE EVENT DATE: 2016
